FAERS Safety Report 12480694 (Version 4)
Quarter: 2016Q3

REPORT INFORMATION
  Report Type: Spontaneous
  Country: DE (occurrence: DE)
  Receive Date: 20160620
  Receipt Date: 20160721
  Transmission Date: 20161109
  Serious: Yes (Life-Threatening, Hospitalization, Disabling)
  Sender: FDA-Public Use
  Company Number: DE-BIOGEN-2016BI00253195

PATIENT
  Age: 21 Year
  Sex: Female
  Weight: 83 kg

DRUGS (7)
  1. TECFIDERA [Suspect]
     Active Substance: DIMETHYL FUMARATE
     Dosage: MAINTENANCE DOSE
     Route: 048
     Dates: start: 20160412, end: 20160418
  2. PREDNISOLONE. [Concomitant]
     Active Substance: PREDNISOLONE
     Route: 048
  3. TECFIDERA [Suspect]
     Active Substance: DIMETHYL FUMARATE
     Indication: MULTIPLE SCLEROSIS
     Dosage: STARTER DOSE
     Route: 048
     Dates: start: 20160401
  4. KONTRAZEPTIVUM [Concomitant]
     Indication: PRODUCT USED FOR UNKNOWN INDICATION
     Route: 048
     Dates: end: 20160418
  5. TECFIDERA [Suspect]
     Active Substance: DIMETHYL FUMARATE
     Dosage: STARTER DOSE
     Route: 048
     Dates: start: 20160404, end: 20160411
  6. TECFIDERA [Suspect]
     Active Substance: DIMETHYL FUMARATE
     Dosage: MAINTENANCE DOSE
     Route: 048
     Dates: start: 20160412, end: 20160418
  7. PREDNISOLONE. [Concomitant]
     Active Substance: PREDNISOLONE
     Indication: MULTIPLE SCLEROSIS RELAPSE
     Route: 042

REACTIONS (13)
  - Embolism [Recovered/Resolved with Sequelae]
  - Lung disorder [Unknown]
  - Infection susceptibility increased [Unknown]
  - Truncus coeliacus thrombosis [Not Recovered/Not Resolved]
  - Drug intolerance [Unknown]
  - Low density lipoprotein increased [Unknown]
  - Splenic infarction [Not Recovered/Not Resolved]
  - Pleural effusion [Unknown]
  - Stenosis [Unknown]
  - Flank pain [Unknown]
  - Pancreatitis [Not Recovered/Not Resolved]
  - Dehydration [Unknown]
  - Abdominal pain [Unknown]

NARRATIVE: CASE EVENT DATE: 20160415
